FAERS Safety Report 24276950 (Version 1)
Quarter: 2024Q3

REPORT INFORMATION
  Report Type: Spontaneous
  Country: CN (occurrence: CN)
  Receive Date: 20240903
  Receipt Date: 20240903
  Transmission Date: 20241016
  Serious: Yes (Hospitalization, Other)
  Sender: ASTELLAS
  Company Number: CN-ASTELLAS-2024-AER-001772

PATIENT
  Age: 74 Year
  Sex: Male
  Weight: 70 kg

DRUGS (1)
  1. ISAVUCONAZONIUM SULFATE [Suspect]
     Active Substance: ISAVUCONAZONIUM SULFATE
     Indication: Bronchopulmonary aspergillosis
     Route: 042
     Dates: start: 20240805, end: 20240806

REACTIONS (4)
  - Blindness transient [Recovered/Resolved]
  - Malaise [Recovered/Resolved]
  - Dizziness [Recovered/Resolved]
  - Nausea [Recovered/Resolved]

NARRATIVE: CASE EVENT DATE: 20240806
